FAERS Safety Report 7806861-8 (Version None)
Quarter: 2011Q4

REPORT INFORMATION
  Report Type: 
  Country: None (occurrence: None)
  Receive Date: 20111011
  Receipt Date: 20111004
  Transmission Date: 20120403
  Serious: Yes (Other)
  Sender: FDA-Public Use
  Company Number: US-PFIZER INC-2011190845

PATIENT
  Sex: Female

DRUGS (2)
  1. LIPITOR [Suspect]
     Dosage: UNK
  2. PRAVACHOL [Suspect]
     Dosage: UNK

REACTIONS (5)
  - JOINT INJURY [None]
  - PAIN [None]
  - MYALGIA [None]
  - ARTHRITIS [None]
  - RHEUMATOID ARTHRITIS [None]
